FAERS Safety Report 8606838 (Version 4)
Quarter: 2014Q2

REPORT INFORMATION
  Report Type: Spontaneous
  Country: US (occurrence: US)
  Receive Date: 20120611
  Receipt Date: 20140522
  Transmission Date: 20141212
  Serious: Yes (Hospitalization, Disabling, Other)
  Sender: FDA-Public Use
  Company Number: US-ASTRAZENECA-2012SE35807

PATIENT
  Age: 44 Year
  Sex: Male
  Weight: 89.4 kg

DRUGS (26)
  1. NEXIUM [Suspect]
     Indication: GASTROOESOPHAGEAL REFLUX DISEASE
     Dosage: 20 TO 40 MG, DAILY
     Route: 048
     Dates: start: 2000, end: 2010
  2. NEXIUM [Suspect]
     Indication: BARRETT^S OESOPHAGUS
     Dosage: 20 TO 40 MG, DAILY
     Route: 048
     Dates: start: 2000, end: 2010
  3. NEXIUM [Suspect]
     Indication: GASTROOESOPHAGEAL REFLUX DISEASE
     Route: 048
     Dates: start: 2000, end: 2010
  4. NEXIUM [Suspect]
     Indication: BARRETT^S OESOPHAGUS
     Route: 048
     Dates: start: 2000, end: 2010
  5. NEXIUM [Suspect]
     Indication: GASTROOESOPHAGEAL REFLUX DISEASE
     Route: 048
     Dates: start: 2002, end: 201006
  6. NEXIUM [Suspect]
     Indication: BARRETT^S OESOPHAGUS
     Route: 048
     Dates: start: 2002, end: 201006
  7. NEXIUM [Suspect]
     Indication: GASTROOESOPHAGEAL REFLUX DISEASE
     Route: 048
     Dates: start: 20030818
  8. NEXIUM [Suspect]
     Indication: BARRETT^S OESOPHAGUS
     Route: 048
     Dates: start: 20030818
  9. NEXIUM [Suspect]
     Indication: GASTROOESOPHAGEAL REFLUX DISEASE
     Route: 048
     Dates: start: 20100628
  10. NEXIUM [Suspect]
     Indication: BARRETT^S OESOPHAGUS
     Route: 048
     Dates: start: 20100628
  11. OMEPRAZOLE [Suspect]
     Dosage: ONCE SOMETIMES TWICE A DAY WITH A DOSE OF 20 MG
     Route: 048
  12. OMEPRAZOLE [Suspect]
     Route: 048
     Dates: start: 20080825
  13. OMEPRAZOLE [Suspect]
     Route: 048
     Dates: start: 20080925
  14. PRILOSEC OTC [Suspect]
     Route: 048
  15. PROVOCET [Concomitant]
  16. ROLAIDS [Concomitant]
     Dosage: ONCE SOMETIMES TWICE A DAY WITH A DOSE OF 20 MG
  17. ROLAIDS [Concomitant]
     Dates: start: 2000
  18. TUMS [Concomitant]
     Dosage: ONCE SOMETIMES TWICE A DAY WITH A DOSE OF 20 MG
  19. TUMS [Concomitant]
     Dates: start: 2000
  20. PEPTO [Concomitant]
  21. MYLANTA [Concomitant]
  22. PREVACID [Concomitant]
     Indication: GASTROOESOPHAGEAL REFLUX DISEASE
     Dates: start: 1999, end: 2002
  23. PREVACID [Concomitant]
     Indication: BARRETT^S OESOPHAGUS
     Dates: start: 1999, end: 2002
  24. MULTIVITAMIN [Concomitant]
  25. LORTAB [Concomitant]
     Indication: PAIN IN EXTREMITY
  26. ZANTAC [Concomitant]
     Dosage: HALF DAILY
     Route: 048
     Dates: start: 20040713

REACTIONS (11)
  - Multiple fractures [Unknown]
  - Fibula fracture [Unknown]
  - Limb injury [Unknown]
  - Ankle fracture [Unknown]
  - Nerve injury [Unknown]
  - Tibia fracture [Unknown]
  - Fall [Unknown]
  - Osteoporosis [Unknown]
  - Bone pain [Unknown]
  - Rhinorrhoea [Unknown]
  - Tonsillar disorder [Unknown]
